FAERS Safety Report 10358223 (Version 2)
Quarter: 2014Q4

REPORT INFORMATION
  Report Type: Spontaneous
  Country: IT (occurrence: IT)
  Receive Date: 20140801
  Receipt Date: 20141201
  Transmission Date: 20150528
  Serious: Yes (Other)
  Sender: FDA-Public Use
  Company Number: IT-ELI_LILLY_AND_COMPANY-IT201407008996

PATIENT
  Age: 46 Year
  Sex: Female

DRUGS (2)
  1. GEMZAR [Suspect]
     Active Substance: GEMCITABINE HYDROCHLORIDE
     Indication: ENDOMETRIAL CANCER STAGE III
     Dosage: 1900 MG, CYCLICAL
     Route: 042
     Dates: start: 20140625, end: 20140625
  2. LIMICAN [Concomitant]
     Indication: PREMEDICATION
     Dosage: 50 MG, UNKNOWN
     Route: 042
     Dates: start: 20140625, end: 20140625

REACTIONS (3)
  - Hyperhidrosis [Recovered/Resolved]
  - Hyperglycaemia [Recovered/Resolved]
  - Dyspnoea [Recovered/Resolved]

NARRATIVE: CASE EVENT DATE: 20140625
